FAERS Safety Report 12612523 (Version 3)
Quarter: 2016Q3

REPORT INFORMATION
  Report Type: Spontaneous
  Country: FR (occurrence: FR)
  Receive Date: 20160801
  Receipt Date: 20160902
  Transmission Date: 20161109
  Serious: Yes (Other)
  Sender: FDA-Public Use
  Company Number: FR-ABBVIE-16P-056-1690245-00

PATIENT
  Age: 50 Year
  Sex: Male

DRUGS (1)
  1. DEPAKINE CHRONO [Suspect]
     Active Substance: VALPROATE SODIUM
     Indication: PETIT MAL EPILEPSY
     Dosage: 1 DF IN AM AND 2 DF IN EVENING
     Route: 048
     Dates: start: 1978

REACTIONS (2)
  - Drug ineffective [Unknown]
  - Petit mal epilepsy [Not Recovered/Not Resolved]
